FAERS Safety Report 25575426 (Version 1)
Quarter: 2025Q3

REPORT INFORMATION
  Report Type: Spontaneous
  Country: US (occurrence: US)
  Receive Date: 20250718
  Receipt Date: 20250718
  Transmission Date: 20251021
  Serious: Yes (Hospitalization)
  Sender: PRINSTON PHARMACEUTICAL
  Company Number: US-PRINSTON PHARMACEUTICAL INC.-2025PRN00225

PATIENT
  Age: 51 Year
  Sex: Male

DRUGS (4)
  1. BUPROPION HYDROCHLORIDE [Suspect]
     Active Substance: BUPROPION HYDROCHLORIDE
  2. CITALOPRAM [Suspect]
     Active Substance: CITALOPRAM
  3. TRAZODONE [Suspect]
     Active Substance: TRAZODONE HYDROCHLORIDE
  4. ALCOHOL [Suspect]
     Active Substance: ALCOHOL

REACTIONS (2)
  - Cardiotoxicity [Recovered/Resolved]
  - Intentional overdose [Recovered/Resolved]
